FAERS Safety Report 14254113 (Version 3)
Quarter: 2017Q4

REPORT INFORMATION
  Report Type: Report from Study
  Country: MX (occurrence: MX)
  Receive Date: 20171206
  Receipt Date: 20171222
  Transmission Date: 20180321
  Serious: Yes (Death, Hospitalization)
  Sender: FDA-Public Use
  Company Number: MX-ROCHE-2031162

PATIENT
  Age: 40 Year
  Sex: Female
  Weight: 27.5 kg

DRUGS (14)
  1. OMEPRAZOLE. [Concomitant]
     Active Substance: OMEPRAZOLE
     Indication: DEHYDRATION
     Route: 065
     Dates: start: 20171122, end: 20171124
  2. LOPERAMIDE [Concomitant]
     Active Substance: LOPERAMIDE
     Route: 065
     Dates: start: 20171109, end: 20171121
  3. METOCLOPRAMIDE. [Concomitant]
     Active Substance: METOCLOPRAMIDE
     Indication: PROPHYLAXIS
     Route: 065
     Dates: start: 20171109, end: 20171121
  4. NISTATIN [Concomitant]
     Active Substance: NYSTATIN
     Indication: MUCOSAL INFLAMMATION
     Route: 065
     Dates: start: 20171121, end: 20171123
  5. FOSAPREPITANT [Concomitant]
     Active Substance: FOSAPREPITANT
     Route: 065
     Dates: start: 20171107, end: 20171107
  6. 5-FU [Suspect]
     Active Substance: FLUOROURACIL
     Indication: COLORECTAL CANCER METASTATIC
     Dosage: DATE OF MOST RECENT DOSE PRIOR TO AE (MESENTRIC THROMOSIS): 07/NOV/2017 AT  11.00?DATE OF MOST RECEN
     Route: 042
     Dates: start: 20171107
  7. DEXAMETHASONE. [Concomitant]
     Active Substance: DEXAMETHASONE
     Route: 065
     Dates: start: 20171107, end: 20171107
  8. BEVACIZUMAB. [Suspect]
     Active Substance: BEVACIZUMAB
     Indication: COLORECTAL CANCER METASTATIC
     Dosage: DATE OF MOST RECENT DOSE PRIOR TO AE (MESENTRIC THROMOSIS): 07/NOV/2017 AT  11.00?DATE OF MOST RECEN
     Route: 042
     Dates: start: 20171107
  9. FOLINIC ACID [Suspect]
     Active Substance: LEUCOVORIN
     Indication: COLORECTAL CANCER METASTATIC
     Dosage: DATE OF MOST RECENT DOSE PRIOR TO AE (MESENTRIC THROMOSIS): 07/NOV/2017 AT  11.00?DATE OF MOST RECEN
     Route: 042
     Dates: start: 20171107
  10. OXALIPLATIN. [Suspect]
     Active Substance: OXALIPLATIN
     Indication: COLORECTAL CANCER METASTATIC
     Dosage: DATE OF MOST RECENT DOSE PRIOR TO AE (MESENTRIC THROMOSIS): 07/NOV/2017 AT  11.00?DATE OF MOST RECEN
     Route: 042
     Dates: start: 20171107
  11. BICARBONATE [Concomitant]
     Active Substance: BICARBONATE ION
     Indication: MUCOSAL INFLAMMATION
     Route: 065
     Dates: start: 20171121, end: 20171123
  12. OMEPRAZOLE. [Concomitant]
     Active Substance: OMEPRAZOLE
     Indication: PROPHYLAXIS
     Route: 065
     Dates: start: 20171109, end: 20171121
  13. GLIBENCLAMIDE [Concomitant]
     Active Substance: GLYBURIDE
     Route: 065
     Dates: start: 201709, end: 20171123
  14. ONDANSETRON [Concomitant]
     Active Substance: ONDANSETRON
     Route: 065
     Dates: start: 20171107, end: 20171107

REACTIONS (2)
  - Multiple organ dysfunction syndrome [Fatal]
  - Thrombosis mesenteric vessel [Fatal]

NARRATIVE: CASE EVENT DATE: 20171122
